FAERS Safety Report 17070623 (Version 2)
Quarter: 2020Q1

REPORT INFORMATION
  Report Type: Spontaneous
  Country: FR (occurrence: FR)
  Receive Date: 20191125
  Receipt Date: 20200103
  Transmission Date: 20200409
  Serious: Yes (Other)
  Sender: FDA-Public Use
  Company Number: FR-ALLERGAN-1948144US

PATIENT
  Sex: Female

DRUGS (4)
  1. BOTOX [Suspect]
     Active Substance: ONABOTULINUMTOXINA
     Dosage: 50 IU, SINGLE
  2. BOTOX [Suspect]
     Active Substance: ONABOTULINUMTOXINA
     Indication: DYSTONIA
     Dosage: 200 IU, SINGLE
     Route: 030
  3. BACLOFEN. [Concomitant]
     Active Substance: BACLOFEN
     Dosage: 30 MG, QD
     Route: 048
  4. PAROXETINE. [Concomitant]
     Active Substance: PAROXETINE
     Dosage: 20 MG, QD

REACTIONS (2)
  - Venous thrombosis limb [Recovering/Resolving]
  - Off label use [Unknown]
